FAERS Safety Report 7952550-9 (Version None)
Quarter: 2011Q4

REPORT INFORMATION
  Report Type: 
  Country: None (occurrence: None)
  Receive Date: 20111201
  Receipt Date: 20111121
  Transmission Date: 20120403
  Serious: Yes (Other)
  Sender: FDA-Public Use
  Company Number: GXKR2011DE03205

PATIENT
  Sex: Female
  Weight: 68 kg

DRUGS (4)
  1. DYTIDE [Concomitant]
     Dosage: 0.5-0-0
     Route: 048
  2. RASILEZ (ALISKIREN FUMARATE) [Concomitant]
     Dosage: 150 MG, QHS
     Route: 048
  3. METOPROLOL SUCCINATE [Suspect]
     Indication: HYPERTENSION
     Dosage: 47.5 MG, BID (0.5-0-0.5)
     Route: 048
  4. EXFORGE [Concomitant]
     Dosage: 1-0-0
     Route: 048

REACTIONS (8)
  - LIVER DISORDER [None]
  - BLOOD PRESSURE INCREASED [None]
  - RENAL PAIN [None]
  - VISUAL IMPAIRMENT [None]
  - OEDEMA [None]
  - NEPHROLITHIASIS [None]
  - DIZZINESS [None]
  - TINNITUS [None]
